FAERS Safety Report 12707663 (Version 1)
Quarter: 2016Q3

REPORT INFORMATION
  Report Type: Spontaneous
  Country: US (occurrence: US)
  Receive Date: 20160901
  Receipt Date: 20160901
  Transmission Date: 20161109
  Serious: No
  Sender: FDA-Public Use
  Company Number: US-LNK INTERNATIONAL, INC.-1056949

PATIENT
  Age: 40 Year
  Sex: Female

DRUGS (1)
  1. APAP 325MG PHENYLEPHRINE HCI 5MG CAPLETS [Suspect]
     Active Substance: ACETAMINOPHEN\PHENYLEPHRINE HYDROCHLORIDE
     Indication: SINUS CONGESTION

REACTIONS (6)
  - Panic attack [None]
  - Palpitations [None]
  - Heart rate irregular [None]
  - Insomnia [None]
  - Anxiety [None]
  - Hyperthyroidism [None]
